FAERS Safety Report 19841845 (Version 1)
Quarter: 2021Q3

REPORT INFORMATION
  Report Type: Report from Study
  Country: AR (occurrence: AR)
  Receive Date: 20210915
  Receipt Date: 20210915
  Transmission Date: 20211014
  Serious: Yes (Hospitalization, Other)
  Sender: FDA-Public Use
  Company Number: NVSC2021AR206467

PATIENT
  Sex: Female

DRUGS (2)
  1. EXFORGE [Suspect]
     Active Substance: AMLODIPINE BESYLATE\VALSARTAN
     Indication: HYPERTENSION
     Dosage: 1 DF, QD
     Route: 065
  2. DIOVAN D [Suspect]
     Active Substance: HYDROCHLOROTHIAZIDE\VALSARTAN
     Indication: HYPERTENSION
     Dosage: 160 MG, QD (STARTED BEFORE 2010)
     Route: 065
     Dates: end: 2019

REACTIONS (11)
  - Blood potassium decreased [Recovering/Resolving]
  - Memory impairment [Unknown]
  - Blood sodium decreased [Recovering/Resolving]
  - Vomiting [Recovering/Resolving]
  - Cardiac failure [Recovering/Resolving]
  - Nephrolithiasis [Recovering/Resolving]
  - Myocardial infarction [Unknown]
  - Blood pressure increased [Recovering/Resolving]
  - Malaise [Recovering/Resolving]
  - Cholelithiasis [Recovering/Resolving]
  - Drug ineffective [Unknown]

NARRATIVE: CASE EVENT DATE: 2019
